FAERS Safety Report 7112954-3 (Version None)
Quarter: 2010Q4

REPORT INFORMATION
  Report Type: 
  Country: None (occurrence: None)
  Receive Date: 20101119
  Receipt Date: 20101112
  Transmission Date: 20110411
  Serious: Yes (Hospitalization)
  Sender: FDA-Public Use
  Company Number: CA-BAYER-201037194NA

PATIENT
  Age: 38 Year
  Sex: Female

DRUGS (7)
  1. AVELOX [Suspect]
     Indication: SINUSITIS
     Dates: start: 20100501
  2. AVELOX [Suspect]
     Dates: start: 20101012, end: 20101013
  3. SYNTHROID [Concomitant]
     Route: 048
  4. METFORMIN HCL [Concomitant]
     Dosage: TOTAL DAILY DOSE: 1500 MG  UNIT DOSE: 500 MG
     Route: 048
  5. CLONAZEPAM [Concomitant]
  6. AMOXICILLIN AND CLAVULANATE POTASSIUM [Concomitant]
  7. SUPRAX [Concomitant]

REACTIONS (6)
  - DYSPNOEA [None]
  - ELECTROCARDIOGRAM ABNORMAL [None]
  - HEADACHE [None]
  - MUSCLE SPASMS [None]
  - MYALGIA [None]
  - RESTLESS LEGS SYNDROME [None]
